FAERS Safety Report 5521213-1 (Version None)
Quarter: 2007Q4

REPORT INFORMATION
  Report Type: 
  Country: None (occurrence: None)
  Receive Date: 20071119
  Receipt Date: 20071119
  Transmission Date: 20080405
  Serious: Yes (Other)
  Sender: FDA-Public Use
  Company Number: US-SHR-US-2007-007550

PATIENT
  Age: 53 Year
  Sex: Female

DRUGS (2)
  1. CLIMARA [Suspect]
     Dosage: .05 MG/D, CONT
     Route: 062
     Dates: start: 20000101
  2. TOPROL-XL [Concomitant]
     Route: 048

REACTIONS (3)
  - APPLICATION SITE RASH [None]
  - DIVERTICULITIS [None]
  - PHARMACEUTICAL PRODUCT COMPLAINT [None]
